FAERS Safety Report 15526040 (Version 1)
Quarter: 2018Q4

REPORT INFORMATION
  Report Type: Spontaneous
  Country: US (occurrence: US)
  Receive Date: 20181018
  Receipt Date: 20181018
  Transmission Date: 20190205
  Serious: Yes (Other)
  Sender: FDA-Public Use
  Company Number: US-SA-2018SA286471

PATIENT
  Age: 48 Year
  Sex: Female
  Weight: 43.09 kg

DRUGS (14)
  1. OMEPRAZOLE. [Concomitant]
     Active Substance: OMEPRAZOLE
     Dosage: 10 MG
     Route: 048
     Dates: start: 20171019
  2. LASIX [Concomitant]
     Active Substance: FUROSEMIDE
     Dosage: 1 DF, PRN
     Route: 048
     Dates: start: 20170916
  3. OXYGEN. [Concomitant]
     Active Substance: OXYGEN
     Dosage: 2 L
     Dates: start: 20180914
  4. SODIUM CHLORIDE. [Concomitant]
     Active Substance: SODIUM CHLORIDE
     Dosage: UNK
     Route: 042
     Dates: start: 20180719
  5. ALDURAZYME [Suspect]
     Active Substance: LARONIDASE
     Indication: MUCOPOLYSACCHARIDOSIS
     Dosage: 0.6 MG/KG, QW
     Route: 041
  6. NORMAL SALINE [Concomitant]
     Active Substance: SODIUM CHLORIDE
     Dosage: 50 ML
     Route: 042
     Dates: start: 20180719
  7. EPINEPHRINE. [Concomitant]
     Active Substance: EPINEPHRINE
     Indication: ANAPHYLACTIC REACTION
     Dosage: 0.3 MG
     Route: 030
     Dates: start: 20180719
  8. FERROUS SULFATE. [Concomitant]
     Active Substance: FERROUS SULFATE
     Dosage: 65 MG, TID
     Route: 048
     Dates: start: 20170914
  9. BUPRENORPHINE. [Concomitant]
     Active Substance: BUPRENORPHINE
     Dosage: 15 UNK, TID
     Dates: start: 20171114
  10. METOPROLOL SUCCINATE. [Concomitant]
     Active Substance: METOPROLOL SUCCINATE
     Dosage: 25 MG, HS
     Route: 048
     Dates: start: 20170916
  11. ONDANSETRON [Concomitant]
     Active Substance: ONDANSETRON
     Dosage: 4 MG, Q8H
     Route: 048
     Dates: start: 20170914
  12. VALIUM [Concomitant]
     Active Substance: DIAZEPAM
     Dosage: 0.5 UNK, HS
     Route: 048
     Dates: start: 20170125
  13. METHADONE [Concomitant]
     Active Substance: METHADONE HYDROCHLORIDE
     Dosage: 1 MG, BID
     Route: 048
     Dates: start: 20180914
  14. WARFARIN [Concomitant]
     Active Substance: WARFARIN
     Dosage: 1 DF, QD
     Route: 048
     Dates: start: 20170125

REACTIONS (2)
  - Urinary tract infection [Unknown]
  - Dyspnoea [Unknown]
